FAERS Safety Report 9822080 (Version 2)
Quarter: 2014Q1

REPORT INFORMATION
  Report Type: Report from Study
  Country: CA (occurrence: CA)
  Receive Date: 20140116
  Receipt Date: 20140130
  Transmission Date: 20141002
  Serious: Yes (Death)
  Sender: FDA-Public Use
  Company Number: PHHY2014CA004481

PATIENT
  Sex: Male

DRUGS (2)
  1. CLOZARIL [Suspect]
     Indication: SCHIZOPHRENIA
     Dosage: 300 MG AT NIGHT
     Route: 048
     Dates: start: 20100906
  2. ZOLOFT [Concomitant]
     Dosage: 150 MG, QD
     Dates: start: 201207

REACTIONS (3)
  - Death [Fatal]
  - White blood cell count increased [Unknown]
  - Blood triglycerides increased [Unknown]
